FAERS Safety Report 16271037 (Version 2)
Quarter: 2019Q2

REPORT INFORMATION
  Report Type: Spontaneous
  Country: US (occurrence: US)
  Receive Date: 20190505
  Receipt Date: 20190520
  Transmission Date: 20190711
  Serious: Yes (Death, Other)
  Sender: FDA-Public Use
  Company Number: US-INCYTE CORPORATION-2019IN004467

PATIENT

DRUGS (2)
  1. JAKAFI [Suspect]
     Active Substance: RUXOLITINIB
     Indication: SPLENOMEGALY
     Dosage: 10 MILLIGRAM, QD
     Route: 048
     Dates: start: 20181130, end: 20190226
  2. ALEVE [Concomitant]
     Active Substance: NAPROXEN SODIUM
     Indication: PRODUCT USED FOR UNKNOWN INDICATION
     Dosage: 220 MILLIGRAM
     Route: 065

REACTIONS (5)
  - Chronic obstructive pulmonary disease [Fatal]
  - Inappropriate schedule of product administration [Unknown]
  - Cardiac valve disease [Fatal]
  - Off label use [Unknown]
  - Atrial fibrillation [Fatal]

NARRATIVE: CASE EVENT DATE: 20190430
